FAERS Safety Report 5964889-7 (Version None)
Quarter: 2008Q4

REPORT INFORMATION
  Report Type: 
  Country: None (occurrence: None)
  Receive Date: 20081124
  Receipt Date: 20081124
  Transmission Date: 20090506
  Serious: Yes (Life-Threatening, Other)
  Sender: FDA-Public Use
  Company Number: None

PATIENT
  Age: 81 Year
  Sex: Female
  Weight: 74.8435 kg

DRUGS (1)
  1. FUROSEMIDE [Suspect]
     Indication: CARDIAC FAILURE
     Dosage: 1 40MG IN MORNING OTHER
     Route: 050
     Dates: start: 20070310, end: 20081122

REACTIONS (3)
  - ASTHENIA [None]
  - DIZZINESS [None]
  - MUSCULAR WEAKNESS [None]
